FAERS Safety Report 8810970 (Version 2)
Quarter: 2015Q2

REPORT INFORMATION
  Report Type: Spontaneous
  Country: CA (occurrence: CA)
  Receive Date: 20120927
  Receipt Date: 20150407
  Transmission Date: 20150821
  Serious: Yes (Other)
  Sender: FDA-Public Use
  Company Number: CA-RANBAXY-2012US-60399

PATIENT
  Sex: Female

DRUGS (3)
  1. CODEINE [Suspect]
     Active Substance: CODEINE
     Indication: COUGH
     Dosage: UNK
     Route: 063
  2. CODEINE [Suspect]
     Active Substance: CODEINE
     Indication: PAIN
  3. PARACETAMOL+CODEINE [Suspect]
     Active Substance: ACETAMINOPHEN\CODEINE PHOSPHATE
     Indication: AFTERBIRTH PAIN
     Dosage: 1.4 MG/KG/D, TID
     Route: 063

REACTIONS (4)
  - Lethargy [Recovering/Resolving]
  - Sedation [Recovering/Resolving]
  - Respiratory arrest [Recovering/Resolving]
  - Exposure during breast feeding [Recovering/Resolving]
